FAERS Safety Report 14587622 (Version 1)
Quarter: 2018Q1

REPORT INFORMATION
  Report Type: Spontaneous
  Country: AR (occurrence: AR)
  Receive Date: 20180301
  Receipt Date: 20180301
  Transmission Date: 20180509
  Serious: Yes (Life-Threatening)
  Sender: FDA-Public Use
  Company Number: AR-KINDOS PHARMACEUTICALS CO., LTD.-2018MHL00002

PATIENT
  Age: 10 Month
  Sex: Male

DRUGS (3)
  1. TOPOTECAN HYDROCHLORIDE. [Concomitant]
     Active Substance: TOPOTECAN HYDROCHLORIDE
     Indication: CONGENITAL RETINOBLASTOMA
     Dosage: 5 CC/MIN; TOOK NO MORE THAN 10 MINUTES
     Route: 031
  2. CARBOPLATIN. [Suspect]
     Active Substance: CARBOPLATIN
     Indication: CONGENITAL RETINOBLASTOMA
     Dosage: 5 CC/MIN; TOOK NO MORE THAN 10 MINUTES
     Route: 031
  3. MELPHALAN HYDROCHLORIDE. [Concomitant]
     Active Substance: MELPHALAN HYDROCHLORIDE
     Indication: CONGENITAL RETINOBLASTOMA
     Dosage: 5 CC/MIN; TOOK NO MORE THAN 10 MINUTES
     Route: 031

REACTIONS (1)
  - Anaphylactic shock [Recovered/Resolved]
